FAERS Safety Report 5423699-X (Version None)
Quarter: 2007Q3

REPORT INFORMATION
  Report Type: 
  Country: None (occurrence: None)
  Receive Date: 20070823
  Receipt Date: 20070816
  Transmission Date: 20080115
  Serious: Yes (Hospitalization)
  Sender: FDA-Public Use
  Company Number: A0608524A

PATIENT
  Age: 49 Year
  Sex: Female
  Weight: 70.9 kg

DRUGS (7)
  1. LAPATINIB [Suspect]
     Indication: BREAST CANCER METASTATIC
     Dosage: 1000MG PER DAY
     Route: 048
     Dates: start: 20060131
  2. PACLITAXEL [Suspect]
     Indication: BREAST CANCER METASTATIC
     Dosage: 80MGM2 WEEKLY
     Route: 042
     Dates: start: 20060131
  3. TRASTUZUMAB [Suspect]
     Indication: BREAST CANCER METASTATIC
     Dosage: 2MGK WEEKLY
     Route: 042
     Dates: start: 20060131
  4. METOPROLOL SUCCINATE [Concomitant]
  5. GABAPENTIN [Concomitant]
  6. CARAFATE [Concomitant]
  7. CLONAZEPAM [Concomitant]

REACTIONS (4)
  - DEHYDRATION [None]
  - DIARRHOEA [None]
  - FATIGUE [None]
  - HYPOKALAEMIA [None]
